FAERS Safety Report 24421829 (Version 3)
Quarter: 2024Q4

REPORT INFORMATION
  Report Type: Spontaneous
  Country: US (occurrence: US)
  Receive Date: 20241010
  Receipt Date: 20241220
  Transmission Date: 20250115
  Serious: No
  Sender: NOVARTIS
  Company Number: US-002147023-NVSC2024US199397

PATIENT
  Sex: Male

DRUGS (1)
  1. KESIMPTA [Suspect]
     Active Substance: OFATUMUMAB
     Indication: Multiple sclerosis
     Dosage: 20 MG
     Route: 058

REACTIONS (6)
  - Tremor [Unknown]
  - Nasopharyngitis [Unknown]
  - Muscular weakness [Unknown]
  - Gait disturbance [Unknown]
  - Ocular discomfort [Unknown]
  - Anxiety [Unknown]
